FAERS Safety Report 7531175-3 (Version None)
Quarter: 2011Q2

REPORT INFORMATION
  Report Type: 
  Country: None (occurrence: None)
  Receive Date: 20110608
  Receipt Date: 20110601
  Transmission Date: 20111010
  Serious: Yes (Other)
  Sender: FDA-Public Use
  Company Number: BR-US-EMD SERONO, INC.-7052181

PATIENT
  Sex: Female

DRUGS (3)
  1. REBIF [Suspect]
     Indication: RELAPSING-REMITTING MULTIPLE SCLEROSIS
     Dates: start: 20020701
  2. HOMEOPATHY [Concomitant]
  3. FLUOXETINE HCL [Concomitant]

REACTIONS (5)
  - GASTROINTESTINAL DYSPLASIA [None]
  - HELICOBACTER GASTRITIS [None]
  - BLOOD THYROID STIMULATING HORMONE INCREASED [None]
  - BLOOD GLUCOSE INCREASED [None]
  - INTESTINAL POLYP [None]
